FAERS Safety Report 22380634 (Version 1)
Quarter: 2023Q2

REPORT INFORMATION
  Report Type: Report from Study
  Country: IT (occurrence: None)
  Receive Date: 20230529
  Receipt Date: 20230529
  Transmission Date: 20230721
  Serious: Yes (Other)
  Sender: FDA-Public Use
  Company Number: None

PATIENT
  Age: 24 Year
  Sex: Female

DRUGS (2)
  1. MAVENCLAD [Suspect]
     Active Substance: CLADRIBINE
     Indication: Multiple sclerosis
     Dosage: CYCLE ONE WEEK ONE THERAPY
     Route: 048
     Dates: start: 20210903
  2. MAVENCLAD [Suspect]
     Active Substance: CLADRIBINE
     Dosage: CYCLE ONE WEEK TWO THERAPY
     Route: 048
     Dates: start: 20211005, end: 20211010

REACTIONS (2)
  - Papilloma [Unknown]
  - Breast mass [Unknown]

NARRATIVE: CASE EVENT DATE: 20221014
